FAERS Safety Report 19859517 (Version 7)
Quarter: 2023Q1

REPORT INFORMATION
  Report Type: Spontaneous
  Country: BE (occurrence: BE)
  Receive Date: 20210920
  Receipt Date: 20230321
  Transmission Date: 20230417
  Serious: Yes (Other)
  Sender: FDA-Public Use
  Company Number: BE-VERTEX PHARMACEUTICALS-2020-017702

PATIENT
  Age: 58 Year
  Sex: Female
  Weight: 47 kg

DRUGS (23)
  1. AZITHROMYCIN [Suspect]
     Active Substance: AZITHROMYCIN
     Indication: Product used for unknown indication
     Dosage: 500 MILLIGRAM (500 MILLIGRAM, 3X1 WEEK)
     Route: 065
     Dates: end: 2020
  2. KALYDECO [Suspect]
     Active Substance: IVACAFTOR
     Indication: Cystic fibrosis
     Dosage: 150 MILLIGRAM, QD (150MG IVACAFTOR, QD)
     Route: 048
     Dates: start: 20200731, end: 20200824
  3. KALYDECO [Suspect]
     Active Substance: IVACAFTOR
     Dosage: HALF DOSAGE REGIMEN (1 TABLET OF MORNING DOSE ONE)
     Route: 048
     Dates: start: 20200831
  4. KALYDECO [Suspect]
     Active Substance: IVACAFTOR
     Dosage: UNK (ONE EVENING TABLET)
     Route: 048
     Dates: start: 20210104
  5. TRIKAFTA [Suspect]
     Active Substance: ELEXACAFTOR\IVACAFTOR\TEZACAFTOR
     Indication: Cystic fibrosis
     Dosage: UNK UNK, QD (1 UNK, 1X/DAY, (100MG ELEXACAFTOR/ 50MG TEZACAFTOR/ 75MG IVACAFTOR, QD))
     Route: 048
     Dates: start: 20200731, end: 20200824
  6. TRIKAFTA [Suspect]
     Active Substance: ELEXACAFTOR\IVACAFTOR\TEZACAFTOR
     Dosage: UNK (1 TABLET OF MORNING DOSE ONE DAY ALTERNATIVE WITH 2  )
     Route: 048
     Dates: start: 20200831, end: 202101
  7. TRIKAFTA [Suspect]
     Active Substance: ELEXACAFTOR\IVACAFTOR\TEZACAFTOR
     Dosage: UNK (2 MORNING DOSE  )
     Route: 048
     Dates: start: 20210104
  8. ELEXACAFTOR\IVACAFTOR\TEZACAFTOR [Suspect]
     Active Substance: ELEXACAFTOR\IVACAFTOR\TEZACAFTOR
     Indication: Cystic fibrosis
     Dosage: 100MGELEXACAFTOR50MGTEZACAFTOR75MGIVACAFTOR,1DAILY
     Route: 048
     Dates: start: 20200731
  9. ELEXACAFTOR\IVACAFTOR\TEZACAFTOR [Suspect]
     Active Substance: ELEXACAFTOR\IVACAFTOR\TEZACAFTOR
     Dosage: 1TAB OF MORNING DOSE ONE DAY ALTERNATIVE WITH 2TAB
     Route: 048
     Dates: start: 20200831, end: 202101
  10. ELEXACAFTOR\IVACAFTOR\TEZACAFTOR [Suspect]
     Active Substance: ELEXACAFTOR\IVACAFTOR\TEZACAFTOR
     Dosage: UNK (2 MORNING DOSE )
     Route: 048
     Dates: start: 20210104
  11. ELEXACAFTOR\IVACAFTOR\TEZACAFTOR [Suspect]
     Active Substance: ELEXACAFTOR\IVACAFTOR\TEZACAFTOR
     Dosage: 100MGELEXACAFTOR50MGTEZACAFTOR75MGIVACAFTOR,1DAILY
     Route: 048
     Dates: start: 20210731
  12. ELEXACAFTOR\IVACAFTOR\TEZACAFTOR [Suspect]
     Active Substance: ELEXACAFTOR\IVACAFTOR\TEZACAFTOR
     Dosage: ALTERNATE 2AND1ELX/TEZA/IVA IN AM WITHOUT PM DOSE
     Route: 048
  13. VISTA D3 [Concomitant]
     Indication: Pancreatic failure
     Dosage: UNK, MONTHLY
     Route: 048
     Dates: start: 20190523
  14. ASPIRIN [Concomitant]
     Active Substance: ASPIRIN
     Indication: Thrombosis prophylaxis
     Dosage: 80 MILLIGRAM, QD (80 MG, QD)
     Route: 048
     Dates: start: 20190207
  15. NOVORAPID [Concomitant]
     Active Substance: INSULIN ASPART
     Indication: Cystic fibrosis related diabetes
     Dosage: UNK, Q8H (FREQ:8 H;UNK, TID)
     Route: 058
     Dates: start: 201709
  16. PULMOZYME [Concomitant]
     Active Substance: DORNASE ALFA
     Indication: Cystic fibrosis lung
     Dosage: 2.5 MILLILITER, QD (X/DAY, (2.5 MILLILITER, QD) )
     Dates: start: 20040325
  17. CREON [Concomitant]
     Active Substance: PANCRELIPASE AMYLASE\PANCRELIPASE LIPASE\PANCRELIPASE PROTEASE
     Indication: Pancreatic failure
     Dosage: UNK (10-12 TABLETS/ DAY)
     Route: 048
     Dates: start: 1999
  18. Pantomed [Concomitant]
     Indication: Reflux gastritis
     Dosage: 40 MILLIGRAM, QD (40 MG, QD)
     Route: 048
     Dates: start: 20110908
  19. FENOTEROL HYDROBROMIDE [Concomitant]
     Active Substance: FENOTEROL HYDROBROMIDE
     Indication: Bronchial hyperreactivity
     Dosage: 4 MILLILITER, PRN
     Dates: start: 20170517
  20. DEXTROMETHORPHAN HYDROBROMIDE [Concomitant]
     Active Substance: DEXTROMETHORPHAN HYDROBROMIDE
     Dosage: UNK
     Route: 065
  21. DEXTROMETHORPHAN HYDROBROMIDE [Concomitant]
     Active Substance: DEXTROMETHORPHAN HYDROBROMIDE
     Dosage: UNK
     Route: 065
  22. ASPIRIN [Concomitant]
     Active Substance: ASPIRIN
     Dosage: UNK
     Route: 065
  23. FENOTEROL [Concomitant]
     Active Substance: FENOTEROL
     Dosage: UNK
     Route: 065

REACTIONS (6)
  - Drug-induced liver injury [Recovered/Resolved]
  - Alanine aminotransferase increased [Recovering/Resolving]
  - Aspartate aminotransferase increased [Recovering/Resolving]
  - Blood lactate dehydrogenase increased [Recovering/Resolving]
  - Gamma-glutamyltransferase increased [Recovering/Resolving]
  - Blood alkaline phosphatase increased [Recovering/Resolving]

NARRATIVE: CASE EVENT DATE: 20200801
